FAERS Safety Report 25154492 (Version 2)
Quarter: 2025Q2

REPORT INFORMATION
  Report Type: Spontaneous
  Country: US (occurrence: US)
  Receive Date: 20250403
  Receipt Date: 20250411
  Transmission Date: 20250716
  Serious: Yes (Other)
  Sender: AUROBINDO
  Company Number: US-AUROBINDO-AUR-APL-2025-017326

PATIENT

DRUGS (2)
  1. MIRTAZAPINE [Suspect]
     Active Substance: MIRTAZAPINE
     Indication: Anxiety
     Route: 065
  2. MIRTAZAPINE [Suspect]
     Active Substance: MIRTAZAPINE
     Indication: Sleep disorder

REACTIONS (7)
  - Burn oral cavity [Unknown]
  - Throat irritation [Unknown]
  - Headache [Unknown]
  - Muscle tightness [Unknown]
  - Product taste abnormal [Unknown]
  - Product odour abnormal [Unknown]
  - Suspected product contamination [Unknown]
